FAERS Safety Report 17811097 (Version 1)
Quarter: 2020Q2

REPORT INFORMATION
  Report Type: Report from Study
  Country: KR (occurrence: KR)
  Receive Date: 20200521
  Receipt Date: 20200521
  Transmission Date: 20200714
  Serious: Yes (Hospitalization)
  Sender: FDA-Public Use
  Company Number: KR-SA-2020SA128027

PATIENT
  Age: 61 Year
  Sex: Male
  Weight: 69.8 kg

DRUGS (4)
  1. NEBISTOL [Concomitant]
     Dosage: UNK
     Route: 065
     Dates: start: 20200429
  2. TAMBOCOR [Concomitant]
     Active Substance: FLECAINIDE ACETATE
     Dosage: UNK
     Route: 065
     Dates: start: 20200429
  3. DRONEDARONE [Suspect]
     Active Substance: DRONEDARONE
     Indication: ATRIAL FIBRILLATION
     Dosage: UNK
     Route: 065
     Dates: start: 20200513, end: 20200514
  4. MYUNGIN DIAZEPAM [Concomitant]
     Dosage: UNK
     Route: 065
     Dates: start: 20200513, end: 20200514

REACTIONS (1)
  - Hyperkalaemia [Recovered/Resolved]

NARRATIVE: CASE EVENT DATE: 20200514
